FAERS Safety Report 4993231-3 (Version None)
Quarter: 2006Q1

REPORT INFORMATION
  Report Type: 
  Country: None (occurrence: None)
  Receive Date: 20060314
  Receipt Date: 20050303
  Transmission Date: 20060701
  Serious: Yes (Other)
  Sender: FDA-Public Use
  Company Number: 200510923BCC

PATIENT
  Age: 30 Year
  Sex: Female
  Weight: 81.6475 kg

DRUGS (1)
  1. MIDOL [Suspect]
     Indication: MENSTRUAL DISORDER
     Dosage: 220 MG, ONCE, ORAL
     Route: 048
     Dates: start: 20050227

REACTIONS (2)
  - DYSPNOEA [None]
  - HYPERSENSITIVITY [None]
